FAERS Safety Report 20365141 (Version 1)
Quarter: 2022Q1

REPORT INFORMATION
  Report Type: Spontaneous
  Country: DE (occurrence: DE)
  Receive Date: 20220122
  Receipt Date: 20220122
  Transmission Date: 20220423
  Serious: Yes (Hospitalization, Other)
  Sender: FDA-Public Use
  Company Number: None

PATIENT
  Age: 65 Year
  Sex: Male
  Weight: 68 kg

DRUGS (2)
  1. APIXABAN [Suspect]
     Active Substance: APIXABAN
     Indication: Product used for unknown indication
     Dosage: 5 MG, 1-0-1-0
  2. DILTIAZEM [Concomitant]
     Active Substance: DILTIAZEM
     Dosage: 90 MG, 1-0-1-0

REACTIONS (6)
  - Nocturia [Recovered/Resolved]
  - General physical health deterioration [Recovered/Resolved]
  - Condition aggravated [Recovered/Resolved]
  - Anaemia [Recovered/Resolved]
  - Urogenital haemorrhage [Recovered/Resolved]
  - Urinary hesitation [Recovered/Resolved]
